FAERS Safety Report 6384173-X (Version None)
Quarter: 2009Q4

REPORT INFORMATION
  Report Type: 
  Country: None (occurrence: None)
  Receive Date: 20091001
  Receipt Date: 20090922
  Transmission Date: 20100525
  Serious: Yes (Hospitalization, Other)
  Sender: FDA-Public Use
  Company Number: A0782866A

PATIENT
  Sex: Male
  Weight: 76 kg

DRUGS (3)
  1. LAPATINIB [Suspect]
     Route: 048
     Dates: start: 20090318
  2. CISPLATIN [Suspect]
     Dosage: 100MGM2 CYCLIC
     Route: 042
     Dates: start: 20090324
  3. RADIOTHERAPY [Suspect]
     Dosage: 4GY PER DAY
     Route: 061
     Dates: start: 20090324

REACTIONS (3)
  - LYMPHOPENIA [None]
  - PERFORMANCE STATUS DECREASED [None]
  - RADIATION MUCOSITIS [None]
